FAERS Safety Report 11194879 (Version 1)
Quarter: 2015Q2

REPORT INFORMATION
  Report Type: Spontaneous
  Country: AR (occurrence: AR)
  Receive Date: 20150617
  Receipt Date: 20150617
  Transmission Date: 20150821
  Serious: Yes (Other)
  Sender: FDA-Public Use
  Company Number: AR-AMGEN-ARGSP2015058721

PATIENT
  Age: 67 Year
  Sex: Female

DRUGS (4)
  1. T4 [Concomitant]
     Active Substance: LEVOTHYROXINE
     Dosage: UNK
  2. PLENICA PRACTIDOSIS [Concomitant]
     Indication: INSOMNIA
     Dosage: UNK
  3. ENBREL [Suspect]
     Active Substance: ETANERCEPT
     Indication: RHEUMATOID ARTHRITIS
     Dosage: 50 MG, WEEKLY
     Route: 065
     Dates: start: 20090102
  4. CALMADOR PLUS [Concomitant]
     Dosage: UNK

REACTIONS (3)
  - Cerebrovascular accident [Recovered/Resolved]
  - Blood pressure decreased [Recovering/Resolving]
  - Malaise [Recovering/Resolving]

NARRATIVE: CASE EVENT DATE: 20101026
